FAERS Safety Report 21958318 (Version 1)
Quarter: 2023Q1

REPORT INFORMATION
  Report Type: Spontaneous
  Country: US (occurrence: US)
  Receive Date: 20230206
  Receipt Date: 20230206
  Transmission Date: 20230418
  Serious: No
  Sender: FDA-Public Use
  Company Number: US-BAYER-2023A011700

PATIENT
  Age: 61 Year
  Sex: Female

DRUGS (1)
  1. KYLEENA [Suspect]
     Active Substance: LEVONORGESTREL
     Indication: Hormone replacement therapy
     Dosage: 17.5?G/DAY
     Route: 015
     Dates: start: 20230119, end: 20230119

REACTIONS (2)
  - Off label use of device [Unknown]
  - Device use issue [None]

NARRATIVE: CASE EVENT DATE: 20230119
